FAERS Safety Report 17692896 (Version 1)
Quarter: 2020Q2

REPORT INFORMATION
  Report Type: Spontaneous
  Country: DE (occurrence: DE)
  Receive Date: 20200422
  Receipt Date: 20200422
  Transmission Date: 20200714
  Serious: Yes (Death, Other)
  Sender: FDA-Public Use
  Company Number: DE-TEVA-2020-DE-1224827

PATIENT
  Age: 24 Year
  Sex: Female

DRUGS (6)
  1. TREOSULFAN [Suspect]
     Active Substance: TREOSULFAN
     Indication: CHOROID MELANOMA
  2. FOTEMUSTINE [Suspect]
     Active Substance: FOTEMUSTINE
     Indication: CHOROID MELANOMA
  3. TREOSULFAN [Suspect]
     Active Substance: TREOSULFAN
     Indication: METASTASES TO LIVER
     Route: 065
  4. GEMCITABINE. [Suspect]
     Active Substance: GEMCITABINE
     Indication: METASTASES TO LIVER
     Route: 065
  5. FOTEMUSTINE [Suspect]
     Active Substance: FOTEMUSTINE
     Indication: METASTASES TO LIVER
     Dosage: ADMINISTERED 6 CYCLES
     Route: 065
  6. GEMCITABINE. [Suspect]
     Active Substance: GEMCITABINE
     Indication: CHOROID MELANOMA

REACTIONS (2)
  - Hepatic failure [Fatal]
  - Drug ineffective [Unknown]
